FAERS Safety Report 5739696-0 (Version None)
Quarter: 2008Q2

REPORT INFORMATION
  Report Type: 
  Country: None (occurrence: None)
  Receive Date: 20080513
  Receipt Date: 20080424
  Transmission Date: 20081010
  Serious: Yes (Hospitalization)
  Sender: FDA-Public Use
  Company Number: S08-ITA-00455-01

PATIENT
  Age: 66 Year
  Sex: Male

DRUGS (1)
  1. MONUROL [Suspect]
     Indication: URINARY TRACT INFECTION
     Dosage: 6 G ONCE PO
     Route: 048
     Dates: start: 20080116, end: 20080116

REACTIONS (4)
  - FACIAL BONES FRACTURE [None]
  - FALL [None]
  - SYNCOPE [None]
  - VOMITING [None]
